FAERS Safety Report 5037688-0 (Version None)
Quarter: 2006Q2

REPORT INFORMATION
  Report Type: 
  Country: None (occurrence: None)
  Receive Date: 20060627
  Receipt Date: 20060627
  Transmission Date: 20061013
  Serious: Yes (Other)
  Sender: FDA-Public Use
  Company Number: None

PATIENT
  Sex: Male
  Weight: 90.7194 kg

DRUGS (7)
  1. CRESTOR [Suspect]
     Indication: HYPERCHOLESTEROLAEMIA
     Dosage: 20 MG DAILY PO
     Route: 048
     Dates: start: 20060524, end: 20060615
  2. ATENOLOL [Concomitant]
  3. PLAVIX [Concomitant]
  4. NIASPAN [Concomitant]
  5. ALTACE [Concomitant]
  6. FOLTX [Concomitant]
  7. HYDROCHLOROTHIAZIDE [Concomitant]

REACTIONS (1)
  - SINUS TACHYCARDIA [None]
